FAERS Safety Report 9860935 (Version 3)
Quarter: 2014Q1

REPORT INFORMATION
  Report Type: Spontaneous
  Country: GB (occurrence: None)
  Receive Date: 20140130
  Receipt Date: 20140310
  Transmission Date: 20141002
  Serious: Yes (Other)
  Sender: FDA-Public Use
  Company Number: FK201400252

PATIENT
  Sex: Female

DRUGS (18)
  1. METHOTREXATE (MANUFACTURER UNKNOWN) (METHOTREXATE) (METHOTREXATE) [Suspect]
     Indication: ANGIOEDEMA
  2. METHOTREXATE (MANUFACTURER UNKNOWN) (METHOTREXATE) (METHOTREXATE) [Suspect]
     Indication: URTICARIA CHRONIC
  3. CETIRIZINE [Suspect]
     Indication: ANGIOEDEMA
  4. CETIRIZINE [Suspect]
     Indication: URTICARIA CHRONIC
  5. CICLOSPORIN [Suspect]
     Indication: ANGIOEDEMA
  6. CICLOSPORIN [Suspect]
     Indication: URTICARIA CHRONIC
  7. DAPSONE [Suspect]
     Indication: ANGIOEDEMA
     Dosage: 50 MG, 1 IN 1 WK
  8. DAPSONE [Suspect]
     Indication: ANGIOEDEMA
     Dosage: 50 MG, 1 IN 1 WK
  9. FEXOFENADINE (FEXOFENADINE) (FEXOFENADINE) [Suspect]
     Indication: ANGIOEDEMA
  10. FEXOFENADINE (FEXOFENADINE) (FEXOFENADINE) [Suspect]
     Indication: URTICARIA CHRONIC
  11. HYDROXYCHLOROQUINE [Suspect]
     Indication: ANGIOEDEMA
     Dosage: 400 MG, 1 IN 1 D
  12. HYDROXYCHLOROQUINE [Suspect]
     Indication: URTICARIA CHRONIC
     Dosage: 400 MG, 1 IN 1 D
  13. HYDROXYZINE (HYDROXYZINE) (HYDROXYZINE) [Suspect]
     Indication: ANGIOEDEMA
  14. HYDROXYZINE (HYDROXYZINE) (HYDROXYZINE) [Suspect]
     Indication: URTICARIA CHRONIC
  15. LORATADINE (LORATADINE) (LORATADINE) [Suspect]
     Indication: ANGIOEDEMA
  16. LORATADINE (LORATADINE) (LORATADINE) [Suspect]
     Indication: URTICARIA CHRONIC
  17. PREDNISOLONE [Suspect]
     Indication: ANGIOEDEMA
     Dosage: 40 MG, 1 IN 1 WK
  18. PREDNISOLONE [Suspect]
     Indication: URTICARIA CHRONIC
     Dosage: 40 MG, 1 IN 1 WK

REACTIONS (5)
  - Angioedema [None]
  - Asthma [None]
  - Blood pressure increased [None]
  - Drug ineffective [None]
  - Urticaria [None]
